FAERS Safety Report 14897810 (Version 1)
Quarter: 2018Q2

REPORT INFORMATION
  Report Type: Spontaneous
  Country: TR (occurrence: TR)
  Receive Date: 20180515
  Receipt Date: 20180515
  Transmission Date: 20180711
  Serious: Yes (Congenital Anomaly)
  Sender: FDA-Public Use
  Company Number: TR-UCBSA-2018020193

PATIENT

DRUGS (3)
  1. LEVETIRACETAM. [Suspect]
     Active Substance: LEVETIRACETAM
     Indication: EPILEPSY
     Dosage: 3000 MG/DAY
     Route: 064
  2. VALPROIC ACID. [Concomitant]
     Active Substance: VALPROIC ACID
     Indication: EPILEPSY
     Dosage: 1000 MG/DAY
     Route: 064
  3. ZONISAMIDE. [Concomitant]
     Active Substance: ZONISAMIDE
     Indication: EPILEPSY
     Dosage: 300 MG/DAY
     Route: 064

REACTIONS (5)
  - High arched palate [Unknown]
  - Syndactyly [Unknown]
  - Atrial septal defect [Unknown]
  - Cleft lip [Unknown]
  - Foetal exposure during pregnancy [Unknown]
